FAERS Safety Report 7400447-5 (Version None)
Quarter: 2011Q2

REPORT INFORMATION
  Report Type: 
  Country: None (occurrence: None)
  Receive Date: 20110407
  Receipt Date: 20110330
  Transmission Date: 20111010
  Serious: Yes (Death, Other)
  Sender: FDA-Public Use
  Company Number: US-BAXTER-2011BH003648

PATIENT
  Age: 52 Year
  Sex: Male

DRUGS (3)
  1. DOPAMINE [Concomitant]
     Indication: HYPOTENSION
     Route: 065
  2. HEPARIN SODIUM INJECTION [Suspect]
     Indication: INTRAVENOUS CATHETER MANAGEMENT
     Route: 042
     Dates: start: 20071219, end: 20071227
  3. EPINEPHRINE [Concomitant]
     Indication: PRODUCT USED FOR UNKNOWN INDICATION
     Route: 065

REACTIONS (6)
  - HEPARIN-INDUCED THROMBOCYTOPENIA [None]
  - SEPSIS [None]
  - HYPOTENSION [None]
  - PYREXIA [None]
  - BRADYCARDIA [None]
  - CARDIO-RESPIRATORY ARREST [None]
